FAERS Safety Report 9282712 (Version 1)
Quarter: 2013Q2

REPORT INFORMATION
  Report Type: Report from Study
  Country: EG (occurrence: EG)
  Receive Date: 20130510
  Receipt Date: 20130510
  Transmission Date: 20140414
  Serious: Yes (Death)
  Sender: FDA-Public Use
  Company Number: EG-SANOFI-AVENTIS-2013SA045953

PATIENT
  Age: 55 Year
  Sex: Female

DRUGS (1)
  1. INSULIN GLARGINE [Suspect]
     Indication: TYPE 2 DIABETES MELLITUS
     Route: 058
     Dates: start: 20120807, end: 20130104

REACTIONS (5)
  - Acidosis [Fatal]
  - Gastritis [Unknown]
  - Oesophageal disorder [Unknown]
  - Inflammation [Unknown]
  - Peritonitis [Unknown]
